FAERS Safety Report 24100303 (Version 1)
Quarter: 2024Q3

REPORT INFORMATION
  Report Type: Report from Study
  Country: US (occurrence: US)
  Receive Date: 20240717
  Receipt Date: 20240717
  Transmission Date: 20241017
  Serious: Yes (Hospitalization)
  Sender: ABBVIE
  Company Number: US-ABBVIE-5821791

PATIENT
  Age: 77 Year
  Sex: Male

DRUGS (3)
  1. DUOPA [Suspect]
     Active Substance: CARBIDOPA\LEVODOPA
     Indication: Parkinson^s disease
     Route: 050
  2. DUOPA [Suspect]
     Active Substance: CARBIDOPA\LEVODOPA
  3. GOCOVRI [Suspect]
     Active Substance: AMANTADINE
     Indication: Product used for unknown indication
     Route: 065

REACTIONS (5)
  - Balance disorder [Not Recovered/Not Resolved]
  - Agitation [Unknown]
  - Hallucination [Not Recovered/Not Resolved]
  - Device kink [Unknown]
  - Fall [Unknown]

NARRATIVE: CASE EVENT DATE: 20240601
